FAERS Safety Report 17435178 (Version 2)
Quarter: 2020Q1

REPORT INFORMATION
  Report Type: Spontaneous
  Country: US (occurrence: US)
  Receive Date: 20200219
  Receipt Date: 20200318
  Transmission Date: 20200409
  Serious: No
  Sender: FDA-Public Use
  Company Number: US-ASTRAZENECA-2020SE22955

PATIENT
  Sex: Female

DRUGS (3)
  1. BYDUREON BCISE [Suspect]
     Active Substance: EXENATIDE
     Route: 065
     Dates: start: 202002
  2. TRULICITY [Concomitant]
     Active Substance: DULAGLUTIDE
  3. BYETTA [Suspect]
     Active Substance: EXENATIDE
     Dosage: UNKNOWN DOSE
     Route: 065

REACTIONS (4)
  - Injection site haemorrhage [Unknown]
  - Injury associated with device [Unknown]
  - Injection site pain [Unknown]
  - Device use issue [Unknown]
